FAERS Safety Report 8564241-4 (Version None)
Quarter: 2012Q3

REPORT INFORMATION
  Report Type: 
  Country: None (occurrence: None)
  Receive Date: 20120803
  Receipt Date: 20120726
  Transmission Date: 20120928
  Serious: Yes (Other)
  Sender: FDA-Public Use
  Company Number: JP-009507513-1207JPN012592

PATIENT

DRUGS (2)
  1. STROMECTOL [Suspect]
     Route: 048
     Dates: start: 20120601, end: 20120601
  2. STROMECTOL [Suspect]
     Route: 048
     Dates: start: 20120611, end: 20120611

REACTIONS (2)
  - EOSINOPHILIA [None]
  - OEDEMA PERIPHERAL [None]
